FAERS Safety Report 7903985-1 (Version None)
Quarter: 2011Q4

REPORT INFORMATION
  Report Type: 
  Country: None (occurrence: None)
  Receive Date: 20111109
  Receipt Date: 20111102
  Transmission Date: 20120403
  Serious: Yes (Other)
  Sender: FDA-Public Use
  Company Number: US-UCBSA-044801

PATIENT
  Sex: Female

DRUGS (1)
  1. CIMZIA [Suspect]
     Dosage: UNKNOWN DOSE
     Route: 058

REACTIONS (3)
  - RASH PRURITIC [None]
  - RASH GENERALISED [None]
  - UPPER RESPIRATORY TRACT INFECTION [None]
